FAERS Safety Report 19351794 (Version 1)
Quarter: 2021Q2

REPORT INFORMATION
  Report Type: Report from Study
  Country: US (occurrence: US)
  Receive Date: 20210531
  Receipt Date: 20210531
  Transmission Date: 20210717
  Serious: Yes (Other)
  Sender: FDA-Public Use
  Company Number: US-GLAXOSMITHKLINE-US2021AMR115569

PATIENT
  Age: 47 Year
  Sex: Female

DRUGS (1)
  1. BELANTAMAB MAFODOTIN. [Suspect]
     Active Substance: BELANTAMAB MAFODOTIN
     Indication: PLASMA CELL MYELOMA
     Dosage: UNK

REACTIONS (6)
  - Vision blurred [Unknown]
  - Eye disorder [Unknown]
  - Corneal cyst [Unknown]
  - Bone pain [Recovered/Resolved]
  - Ocular discomfort [Unknown]
  - Astigmatism [Unknown]
